FAERS Safety Report 13113376 (Version 1)
Quarter: 2017Q1

REPORT INFORMATION
  Report Type: Spontaneous
  Country: US (occurrence: US)
  Receive Date: 20170113
  Receipt Date: 20170113
  Transmission Date: 20170428
  Serious: No
  Sender: FDA-Public Use
  Company Number: GXBR2016US001244

PATIENT
  Age: 51 Year
  Sex: Male
  Weight: 104.31 kg

DRUGS (1)
  1. BUPROPION HCL TABLETS [Suspect]
     Active Substance: BUPROPION HYDROCHLORIDE
     Indication: DEPRESSION
     Dosage: 75 MG, QD
     Route: 048
     Dates: start: 201603, end: 20160406

REACTIONS (5)
  - Dysuria [Unknown]
  - Crying [Unknown]
  - Premature ejaculation [Unknown]
  - Male orgasmic disorder [Unknown]
  - Affect lability [Unknown]

NARRATIVE: CASE EVENT DATE: 201603
